FAERS Safety Report 7952746-6 (Version None)
Quarter: 2011Q4

REPORT INFORMATION
  Report Type: 
  Country: None (occurrence: None)
  Receive Date: 20111201
  Receipt Date: 20111121
  Transmission Date: 20120403
  Serious: Yes (Death, Other)
  Sender: FDA-Public Use
  Company Number: IT-GENZYME-CERZ-1002280

PATIENT
  Sex: Male

DRUGS (3)
  1. CEREZYME [Suspect]
     Indication: GAUCHER'S DISEASE
     Dosage: 400 U, UNK
     Route: 042
     Dates: start: 20110530, end: 20110922
  2. INFANRIX [Concomitant]
     Indication: IMMUNISATION
     Dosage: UNK
     Route: 065
     Dates: start: 20110922
  3. KEPPRA [Concomitant]
     Indication: PRODUCT USED FOR UNKNOWN INDICATION
     Dosage: 100 MG, UNK
     Route: 048
     Dates: start: 20110825, end: 20111003

REACTIONS (3)
  - BRAIN STEM SYNDROME [None]
  - DISEASE PROGRESSION [None]
  - CYTOMEGALOVIRUS TEST POSITIVE [None]
